FAERS Safety Report 9036434 (Version 1)
Quarter: 2013Q1

REPORT INFORMATION
  Report Type: Spontaneous
  Country: ES (occurrence: None)
  Receive Date: 20130114
  Receipt Date: 20130114
  Transmission Date: 20140127
  Serious: Yes (Other)
  Sender: FDA-Public Use
  Company Number: KAD201301-000030

PATIENT
  Age: 46 Year
  Sex: Female

DRUGS (4)
  1. RIBAVIRIN (RIBAVIRIN) [Suspect]
     Indication: CHRONIC HEPATITIS C
  2. PEGYLATED INTERFERON ALFA (PEGYLATED INTERFERON ALFA) [Suspect]
     Indication: CHRONIC HEPATITIS C
  3. DARUNAVIR [Concomitant]
  4. RITONAVIR [Concomitant]

REACTIONS (1)
  - Granuloma annulare [None]
